FAERS Safety Report 6545700-2 (Version None)
Quarter: 2010Q1

REPORT INFORMATION
  Report Type: 
  Country: None (occurrence: None)
  Receive Date: 20100121
  Receipt Date: 20100112
  Transmission Date: 20100710
  Serious: Yes (Hospitalization, Other)
  Sender: FDA-Public Use
  Company Number: PHHY2010JP02548

PATIENT
  Sex: Female
  Weight: 48 kg

DRUGS (11)
  1. STI571/CGP57148B T35717+TAB [Suspect]
     Indication: ACUTE LYMPHOCYTIC LEUKAEMIA
     Dosage: 600 MG DAILY
     Route: 048
     Dates: start: 20081107, end: 20081121
  2. STI571/CGP57148B T35717+TAB [Suspect]
     Dosage: 400 MG DAILY
     Route: 048
     Dates: start: 20081202, end: 20081228
  3. STI571/CGP57148B T35717+TAB [Suspect]
     Dosage: 400 MG DAILY
     Route: 048
     Dates: start: 20090220, end: 20090323
  4. STI571/CGP57148B T35717+TAB [Suspect]
     Dosage: 400 MG DAILY
     Route: 048
     Dates: start: 20090501, end: 20090528
  5. STI571/CGP57148B T35717+TAB [Suspect]
     Dosage: 400 MG DAILY
     Route: 048
     Dates: start: 20000716, end: 20090813
  6. STI571/CGP57148B T35717+TAB [Suspect]
     Dosage: 400 MG DAILY
     Route: 048
     Dates: start: 20091007, end: 20091208
  7. ITRIZOLE [Concomitant]
     Dosage: 200 MG, UNK
     Route: 048
     Dates: start: 20081030
  8. ITRIZOLE [Concomitant]
     Dosage: 200 MG, UNK
     Route: 048
  9. ZOVIRAX [Concomitant]
     Dosage: 200 MG, UNK
     Route: 048
     Dates: start: 20081030
  10. ZOVIRAX [Concomitant]
     Dosage: 200 MG, UNK
     Route: 048
  11. BAKTAR [Concomitant]
     Dosage: 1 DF, UNK
     Route: 048
     Dates: start: 20081030, end: 20090113

REACTIONS (3)
  - BONE MARROW FAILURE [None]
  - C-REACTIVE PROTEIN INCREASED [None]
  - MALIGNANT NEOPLASM PROGRESSION [None]
